FAERS Safety Report 10021221 (Version 3)
Quarter: 2014Q1

REPORT INFORMATION
  Report Type: Report from Study
  Country: FR (occurrence: FR)
  Receive Date: 20140319
  Receipt Date: 20140324
  Transmission Date: 20141002
  Serious: Yes (Death)
  Sender: FDA-Public Use
  Company Number: FR-ROCHE-1245892

PATIENT
  Age: 32 Year
  Sex: Male
  Weight: 134 kg

DRUGS (7)
  1. OBINUTUZUMAB [Suspect]
     Indication: DIFFUSE LARGE B-CELL LYMPHOMA
     Dosage: LAST ADMINISTRATION BREFORE SAE WAS 04/JUL/2013
     Route: 065
     Dates: start: 20130624
  2. ESOMEPRAZOLE [Concomitant]
     Indication: GASTROOESOPHAGEAL REFLUX DISEASE
     Route: 065
     Dates: start: 20130624
  3. BLEOMYCIN SULFATE [Concomitant]
     Route: 065
     Dates: start: 20130624, end: 20130628
  4. CYCLOPHOSPHAMIDE [Concomitant]
     Route: 065
     Dates: start: 20130624, end: 20130628
  5. DOXORUBICIN [Concomitant]
     Route: 065
     Dates: start: 20130624, end: 20130628
  6. PREDNISONE [Concomitant]
     Route: 065
     Dates: start: 20130624, end: 20130628
  7. VINDESINE [Concomitant]
     Route: 065
     Dates: start: 20130624, end: 20130628

REACTIONS (2)
  - Septic shock [Fatal]
  - Cardiac arrest [Fatal]
